FAERS Safety Report 22130239 (Version 1)
Quarter: 2023Q1

REPORT INFORMATION
  Report Type: Spontaneous
  Country: IE (occurrence: IE)
  Receive Date: 20230323
  Receipt Date: 20230323
  Transmission Date: 20230417
  Serious: Yes (Disabling)
  Sender: FDA-Public Use
  Company Number: None

PATIENT
  Age: 5 Year
  Sex: Female

DRUGS (3)
  1. MONTELUKAST [Suspect]
     Active Substance: MONTELUKAST SODIUM
     Indication: Asthma
     Dosage: 5 MILLIGRAM, GRANULES
     Route: 048
     Dates: start: 20221121, end: 20230209
  2. VENTOLIN [Concomitant]
     Active Substance: ALBUTEROL SULFATE
     Indication: Asthma
     Dosage: UNK, PRN (4 PUFFS AS REQUIRED)
     Route: 065
     Dates: start: 20220207, end: 20230305
  3. BECLOMETHASONE DIPROPIONATE [Concomitant]
     Active Substance: BECLOMETHASONE DIPROPIONATE
     Indication: Asthma
     Dosage: UNK (BID) 2 PUFFS TWICE DAILY
     Route: 065
     Dates: start: 20220305, end: 20230305

REACTIONS (10)
  - Staring [Not Recovered/Not Resolved]
  - Social avoidant behaviour [Not Recovered/Not Resolved]
  - Separation anxiety disorder [Not Recovered/Not Resolved]
  - Morose [Not Recovered/Not Resolved]
  - Behaviour disorder [Unknown]
  - Impulse-control disorder [Unknown]
  - Disturbance in social behaviour [Unknown]
  - Impaired quality of life [Unknown]
  - Sleep terror [Unknown]
  - Fatigue [Unknown]
